FAERS Safety Report 9256379 (Version 1)
Quarter: 2013Q2

REPORT INFORMATION
  Report Type: Spontaneous
  Country: NZ (occurrence: NZ)
  Receive Date: 20130425
  Receipt Date: 20130425
  Transmission Date: 20140414
  Serious: No
  Sender: FDA-Public Use
  Company Number: NZ-BAXTER-2013BAX007386

PATIENT
  Sex: Male

DRUGS (1)
  1. EXTRANEAL, 7.5%W/V, DIALYSIS SOLUTION [Suspect]
     Indication: PERITONEAL DIALYSIS
     Route: 033
     Dates: start: 20130222

REACTIONS (2)
  - Blood glucose abnormal [Unknown]
  - Device interaction [Unknown]
